FAERS Safety Report 7837934 (Version 3)
Quarter: 2013Q2

REPORT INFORMATION
  Report Type: Spontaneous
  Country: US (occurrence: US)
  Receive Date: 20110302
  Receipt Date: 20130606
  Transmission Date: 20140414
  Serious: Yes (Other)
  Sender: FDA-Public Use
  Company Number: US-ASTRAZENECA-2010SE18092

PATIENT
  Age: 60 Year
  Sex: Male

DRUGS (3)
  1. TOPROL XL [Suspect]
     Route: 048
  2. CRESTOR [Suspect]
     Route: 048
  3. NEURONTIN [Concomitant]
     Route: 048
     Dates: start: 20130402

REACTIONS (2)
  - Cerebrovascular accident [Unknown]
  - Amnesia [Unknown]
